FAERS Safety Report 6357732-8 (Version None)
Quarter: 2009Q3

REPORT INFORMATION
  Report Type: 
  Country: None (occurrence: None)
  Receive Date: 20090911
  Receipt Date: 20090828
  Transmission Date: 20100115
  Serious: Yes (Hospitalization)
  Sender: FDA-Public Use
  Company Number: 000881

PATIENT
  Sex: Male

DRUGS (2)
  1. VIMPAT [Suspect]
     Indication: EPILEPSY
     Dosage: 200 MG BID ORAL
     Route: 048
     Dates: start: 20090301
  2. VALPROATE SODIUM [Suspect]
     Indication: EPILEPSY
     Dosage: 300 MG BID, DOSAGE IN DOWNTITRATION ORAL
     Route: 048

REACTIONS (4)
  - ALANINE AMINOTRANSFERASE INCREASED [None]
  - ASPARTATE AMINOTRANSFERASE INCREASED [None]
  - HEPATIC STEATOSIS [None]
  - SPLENOMEGALY [None]
